FAERS Safety Report 12492198 (Version 1)
Quarter: 2016Q2

REPORT INFORMATION
  Report Type: Spontaneous
  Country: US (occurrence: US)
  Receive Date: 20160623
  Receipt Date: 20160623
  Transmission Date: 20160815
  Serious: No
  Sender: FDA-Public Use
  Company Number: US-TEVA-668411USA

PATIENT
  Sex: Female

DRUGS (1)
  1. COPAXONE [Suspect]
     Active Substance: GLATIRAMER ACETATE
     Dosage: FORM STRENGTH UNKNOWN

REACTIONS (4)
  - Chills [Recovered/Resolved]
  - Injection site urticaria [Recovered/Resolved]
  - Injection site bruising [Recovered/Resolved]
  - Feeling cold [Recovered/Resolved]
